FAERS Safety Report 18864542 (Version 2)
Quarter: 2021Q1

REPORT INFORMATION
  Report Type: Spontaneous
  Country: CA (occurrence: CA)
  Receive Date: 20210208
  Receipt Date: 20210211
  Transmission Date: 20210420
  Serious: Yes (Hospitalization)
  Sender: FDA-Public Use
  Company Number: CA-009507513-1608CAN005990

PATIENT
  Age: 65 Year
  Sex: Female
  Weight: 81 kg

DRUGS (15)
  1. ATENOLOL. [Concomitant]
     Active Substance: ATENOLOL
     Dosage: 50 MILLIGRAMS DAILY PO
     Route: 048
     Dates: start: 20151111
  2. GRAVOL (GINGER) [Concomitant]
     Active Substance: GINGER
     Dosage: DOSAGE FORM NOT SPECIFIED, 25?50 MG IV/PO Q4H PRN
     Dates: start: 20151114
  3. TRAMACET [Concomitant]
     Active Substance: ACETAMINOPHEN\TRAMADOL
     Dosage: 1 TO 2 TABS PO Q4H PRN
     Route: 048
     Dates: start: 20151126
  4. HUMULIN NOS [Concomitant]
     Active Substance: INSULIN HUMAN
     Dosage: 24 UNIT TID SUBCUT
     Route: 058
     Dates: start: 20151111
  5. DIOVOL (ALUMINUM HYDROXIDE (+) MAGNESIUM HYDROXIDE) [Concomitant]
     Dosage: DOSAGE FORM NOT SPECIFIED, 30 ML PO Q4H PRN
     Route: 048
     Dates: start: 20151214
  6. VENLAFAXINE HYDROCHLORIDE. [Concomitant]
     Active Substance: VENLAFAXINE HYDROCHLORIDE
     Dosage: 150 MG DAILY PO
     Route: 048
     Dates: start: 20151111
  7. CUBICIN [Suspect]
     Active Substance: DAPTOMYCIN
     Indication: STAPHYLOCOCCAL OSTEOMYELITIS
     Dosage: 475 MG, Q24H
     Route: 042
     Dates: start: 20151202, end: 20151216
  8. HUMULIN NOS [Concomitant]
     Active Substance: INSULIN HUMAN
     Dosage: 36 UNIT HS SUBCUT
     Route: 058
     Dates: start: 20151111
  9. SENOKOT [Concomitant]
     Active Substance: SENNOSIDES
     Dosage: FORMULATION NOT SPECIFIED, 17.2 MILLIGRAMS HS PO
     Route: 048
     Dates: start: 20151112
  10. ZOPICLONE [Concomitant]
     Active Substance: ZOPICLONE
     Dosage: 7.5 MG HS PRN PO
     Route: 048
     Dates: start: 20151113
  11. NIFEDIPINE. [Concomitant]
     Active Substance: NIFEDIPINE
     Dosage: FORMULATION NOT SPECIFIED, 90 MG PO DAILY
     Route: 048
     Dates: start: 20151124
  12. INVANZ [Concomitant]
     Active Substance: ERTAPENEM SODIUM
     Dosage: 1000 MG IV Q24H
     Route: 042
     Dates: start: 20151204, end: 20151216
  13. BISACODYL. [Concomitant]
     Active Substance: BISACODYL
     Dosage: DOSAGE FORM NOT SPECIFIED, 10 MILLIGRAMS HS PO
     Route: 048
     Dates: start: 20151113
  14. HUMULIN NOS [Concomitant]
     Active Substance: INSULIN HUMAN
     Dosage: DOSAGE FORM: SOLUTION INTRAMUSCULAR
  15. HEPARIN SODIUM. [Concomitant]
     Active Substance: HEPARIN SODIUM
     Dosage: 5000 UNIT BID SUBCUT
     Route: 058
     Dates: start: 20151111

REACTIONS (4)
  - Hallucination, visual [Recovered/Resolved]
  - Blood creatine phosphokinase increased [Recovered/Resolved]
  - Alanine aminotransferase increased [Recovered/Resolved]
  - Aspartate aminotransferase increased [Recovered/Resolved]

NARRATIVE: CASE EVENT DATE: 20151207
